FAERS Safety Report 6578998-5 (Version None)
Quarter: 2010Q1

REPORT INFORMATION
  Report Type: 
  Country: None (occurrence: None)
  Receive Date: 20100212
  Receipt Date: 20100201
  Transmission Date: 20100710
  Serious: Yes (Hospitalization)
  Sender: FDA-Public Use
  Company Number: CN-ELI_LILLY_AND_COMPANY-CN201001002493

PATIENT
  Age: 74 Year
  Sex: Male
  Weight: 60 kg

DRUGS (6)
  1. H7T-MC-TACE PRASUGREL IMCT ACS PCI STUDY [Suspect]
     Indication: ANGINA UNSTABLE
     Dosage: UNK, UNK
     Route: 048
     Dates: start: 20100104, end: 20100201
  2. ASPIRIN [Concomitant]
     Dates: start: 20100104, end: 20100111
  3. PERINDOPRIL [Concomitant]
     Dates: start: 20100104, end: 20100106
  4. METOPROLOL SUCCINATE [Concomitant]
     Dates: start: 20100105, end: 20100107
  5. HEPARIN SODIUM [Concomitant]
     Dates: start: 20100105, end: 20100111
  6. DILTIAZEM HYDROCHLORIDE [Concomitant]
     Dates: start: 20100111

REACTIONS (2)
  - LACUNAR INFARCTION [None]
  - UPPER GASTROINTESTINAL HAEMORRHAGE [None]
